FAERS Safety Report 6170325-0 (Version None)
Quarter: 2009Q2

REPORT INFORMATION
  Report Type: 
  Country: None (occurrence: None)
  Receive Date: 20090428
  Receipt Date: 20090416
  Transmission Date: 20091009
  Serious: Yes (Death)
  Sender: FDA-Public Use
  Company Number: JP-PFIZER INC-2009199276

PATIENT

DRUGS (3)
  1. ADRIACIN [Suspect]
     Indication: BREAST CANCER
     Dosage: 50 MG/M2, ON DAY 1
     Route: 042
  2. FLUOROURACIL [Suspect]
     Indication: BREAST CANCER
     Dosage: 500 MG/M2, ON DAYS 1 AND 8
     Route: 042
  3. ENDOXAN [Suspect]
     Indication: BREAST CANCER
     Dosage: 500 MG/M2, ON DAY 1
     Route: 042

REACTIONS (1)
  - HEPATITIS B [None]
